FAERS Safety Report 4619448-5 (Version None)
Quarter: 2005Q2

REPORT INFORMATION
  Report Type: 
  Country: None (occurrence: None)
  Receive Date: 20050321
  Receipt Date: 20040518
  Transmission Date: 20051028
  Serious: Yes (Hospitalization)
  Sender: FDA-Public Use
  Company Number: 2004-05-1315

PATIENT
  Age: 57 Year
  Sex: Male
  Weight: 87.0906 kg

DRUGS (14)
  1. PEG-INTRON [Suspect]
     Indication: CARCINOID TUMOUR
     Dosage: 50 MCG QWK
     Dates: start: 20040429
  2. LOVENOX [Concomitant]
  3. PREDNISONE [Concomitant]
  4. LORAZEPAM [Concomitant]
  5. ULTRACET (TRAMADOL HYDROCHLORIDE/ACETAMINOPHEN) [Concomitant]
  6. MEPERIDINE [Concomitant]
  7. COMBIVENT [Concomitant]
  8. TYLENOL (CAPLET) [Concomitant]
  9. VIAGRA [Concomitant]
  10. CENTRUM SILVER DAILY [Concomitant]
  11. VIT C TAB [Concomitant]
  12. VITAMIN E [Concomitant]
  13. VITAMIN B COMPLEX CAP [Concomitant]
  14. VITAMIN B6 [Concomitant]

REACTIONS (2)
  - DYSPNOEA [None]
  - FATIGUE [None]
